FAERS Safety Report 20237663 (Version 2)
Quarter: 2021Q4

REPORT INFORMATION
  Report Type: Spontaneous
  Country: US (occurrence: US)
  Receive Date: 20211228
  Receipt Date: 20211230
  Transmission Date: 20220303
  Serious: Yes (Life-Threatening, Hospitalization, Other)
  Sender: FDA-Public Use
  Company Number: US-MLMSERVICE-20211209-3265733-1

PATIENT
  Age: 72 Year
  Sex: Male

DRUGS (8)
  1. APIXABAN [Suspect]
     Active Substance: APIXABAN
     Indication: Cerebrovascular accident prophylaxis
     Dosage: UNK
  2. LEVOFLOXACIN [Suspect]
     Active Substance: LEVOFLOXACIN
     Indication: Pneumonia
     Dosage: UNK
  3. VANCOMYCIN HYDROCHLORIDE [Suspect]
     Active Substance: VANCOMYCIN HYDROCHLORIDE
     Indication: Arthritis bacterial
     Dosage: UNK
     Route: 042
  4. PREDNISONE [Suspect]
     Active Substance: PREDNISONE
     Indication: Acute respiratory failure
     Dosage: 80 MG
     Route: 048
  5. PREDNISONE [Suspect]
     Active Substance: PREDNISONE
     Indication: Organising pneumonia
  6. OXYGEN [Concomitant]
     Active Substance: OXYGEN
     Indication: Respiratory failure
     Dosage: 4 L
  7. OXYGEN [Concomitant]
     Active Substance: OXYGEN
     Dosage: 10 L
  8. OXYGEN [Concomitant]
     Active Substance: OXYGEN
     Dosage: 60 L

REACTIONS (5)
  - Drug ineffective [Recovered/Resolved]
  - Delirium [Recovered/Resolved]
  - Substance-induced psychotic disorder [Recovered/Resolved]
  - Haemarthrosis [Unknown]
  - Haemoptysis [Unknown]
